FAERS Safety Report 10480604 (Version 1)
Quarter: 2014Q3

REPORT INFORMATION
  Report Type: Spontaneous
  Country: US (occurrence: None)
  Receive Date: 20140925
  Receipt Date: 20140925
  Transmission Date: 20150326
  Serious: Yes (Other)
  Sender: FDA-Public Use
  Company Number: 2014HINLIT0830

PATIENT
  Age: 14 Year
  Sex: Female

DRUGS (7)
  1. ATAZANAVIR [Suspect]
     Active Substance: ATAZANAVIR
     Indication: HIV INFECTION
  2. SALMETEROL (SALMETEROL) [Concomitant]
  3. MOTELUKAST (MOTELUKAST) [Concomitant]
  4. TENOFOVIR (TENOFOVIR) UNKNOWN [Suspect]
     Active Substance: TENOFOVIR
     Indication: HIV INFECTION
  5. DIDANOSINE. [Suspect]
     Active Substance: DIDANOSINE
     Indication: HIV INFECTION
  6. RITONAVIR [Suspect]
     Active Substance: RITONAVIR
     Indication: HIV INFECTION
     Dosage: 100MG, UNKNOWN
  7. FP [Suspect]
     Active Substance: SELEGILINE HYDROCHLORIDE
     Indication: PRODUCT USED FOR UNKNOWN INDICATION

REACTIONS (5)
  - Hirsutism [None]
  - Weight increased [None]
  - Skin striae [None]
  - Cushingoid [None]
  - Drug interaction [None]
